FAERS Safety Report 16304194 (Version 1)
Quarter: 2019Q2

REPORT INFORMATION
  Report Type: Report from Study
  Country: JP (occurrence: JP)
  Receive Date: 20190507
  Receipt Date: 20190507
  Transmission Date: 20190711
  Serious: Yes (Hospitalization)
  Sender: FDA-Public Use
  Company Number: JP-BIOCODEX SA-201800653

PATIENT
  Age: 10 Month
  Sex: Female
  Weight: 5.7 kg

DRUGS (7)
  1. CLOBAZAM. [Concomitant]
     Active Substance: CLOBAZAM
     Indication: SEVERE MYOCLONIC EPILEPSY OF INFANCY
     Route: 048
     Dates: end: 20170705
  2. DIACOMIT [Suspect]
     Active Substance: STIRIPENTOL
     Indication: SEVERE MYOCLONIC EPILEPSY OF INFANCY
     Dosage: 75 MG, QD
     Route: 048
     Dates: start: 20170802, end: 20170816
  3. CLOBAZAM. [Concomitant]
     Active Substance: CLOBAZAM
     Route: 048
     Dates: start: 20170706, end: 20170717
  4. CLOBAZAM. [Concomitant]
     Active Substance: CLOBAZAM
     Route: 048
     Dates: start: 20170718
  5. SODIUM VALPROATE [Concomitant]
     Active Substance: VALPROATE SODIUM
     Indication: SEVERE MYOCLONIC EPILEPSY OF INFANCY
     Route: 048
     Dates: end: 20170816
  6. SODIUM VALPROATE [Concomitant]
     Active Substance: VALPROATE SODIUM
     Route: 048
     Dates: start: 20170817
  7. FERRIC PYROPHOSPHATE, SOLUBLE [Concomitant]
     Indication: PRODUCT USED FOR UNKNOWN INDICATION
     Route: 048

REACTIONS (2)
  - Status epilepticus [Recovered/Resolved]
  - Seizure cluster [Unknown]

NARRATIVE: CASE EVENT DATE: 20170823
